FAERS Safety Report 15110037 (Version 3)
Quarter: 2023Q2

REPORT INFORMATION
  Report Type: Spontaneous
  Country: DE (occurrence: DE)
  Receive Date: 20180705
  Receipt Date: 20230502
  Transmission Date: 20230722
  Serious: Yes (Life-Threatening)
  Sender: FDA-Public Use
  Company Number: PHHY2018GB035830

PATIENT
  Age: 83 Year
  Sex: Male
  Weight: 70 kg

DRUGS (23)
  1. HYDROCHLOROTHIAZIDE\VALSARTAN [Suspect]
     Active Substance: HYDROCHLOROTHIAZIDE\VALSARTAN
     Indication: Hypertension
     Dosage: 160 MG, QD
     Route: 048
  2. FENTANYL [Suspect]
     Active Substance: FENTANYL
     Indication: Anaesthesia
     Dosage: 1 DOSAGE FORM, QD
     Route: 042
     Dates: start: 19980226, end: 19980226
  3. ASPIRIN [Suspect]
     Active Substance: ASPIRIN
     Indication: Thrombosis prophylaxis
     Dosage: 100 MG, QD
     Route: 048
     Dates: start: 19980223
  4. ADALAT [Suspect]
     Active Substance: NIFEDIPINE
     Indication: Hypertension
     Dosage: 10 MG, QD
     Route: 048
     Dates: start: 20180226, end: 20180226
  5. CIPROFLOXACIN HYDROCHLORIDE [Suspect]
     Active Substance: CIPROFLOXACIN HYDROCHLORIDE
     Indication: Infection prophylaxis
     Dosage: 400 MG, QD
     Route: 042
     Dates: start: 19980226, end: 19980226
  6. NOVALGIN (METAMIZOLE SODIUM) [Suspect]
     Active Substance: METAMIZOLE SODIUM
     Indication: Pain
     Dosage: 40 GTT, QD
     Route: 048
     Dates: start: 19980226, end: 19980226
  7. DALTEPARIN SODIUM [Suspect]
     Active Substance: DALTEPARIN SODIUM
     Indication: Thrombosis prophylaxis
     Dosage: 1 DF, QD
     Route: 058
     Dates: start: 19980225
  8. GLYBURIDE [Suspect]
     Active Substance: GLYBURIDE
     Indication: Diabetes mellitus
     Dosage: 2 DF, QD
     Route: 048
  9. BACTRIM [Suspect]
     Active Substance: SULFAMETHOXAZOLE\TRIMETHOPRIM
     Indication: Infection prophylaxis
     Dosage: 1 DF, QD
     Route: 048
     Dates: start: 19980226, end: 19980226
  10. LORMETAZEPAM [Suspect]
     Active Substance: LORMETAZEPAM
     Indication: Sleep disorder
     Dosage: 1 DF, QD
     Route: 048
     Dates: start: 19980226, end: 19980226
  11. TRAMADOL [Suspect]
     Active Substance: TRAMADOL
     Indication: Pain
     Dosage: 100 MG, UNK
     Route: 048
     Dates: start: 19980209, end: 19980223
  12. TRAMADOL [Suspect]
     Active Substance: TRAMADOL
     Dosage: 100 MG, QD
     Route: 048
     Dates: start: 19980223
  13. AMLODIPINE [Concomitant]
     Active Substance: AMLODIPINE BESYLATE
     Indication: Hypertension
     Dosage: 10 MG, QD
     Route: 048
  14. NOVODIGAL [Concomitant]
     Indication: Hypertension
     Dosage: 0.2 MG, QD
     Route: 048
  15. GINKGO [Concomitant]
     Active Substance: GINKGO
     Indication: Cardiovascular disorder
     Dosage: 60 GTT, QD
     Route: 048
     Dates: start: 19980224
  16. HYPERICUM [Concomitant]
     Active Substance: ST. JOHN^S WORT
     Indication: Agitation
     Dosage: 1 DF, UNK
     Route: 048
  17. DEXAMETHASONE [Concomitant]
     Active Substance: DEXAMETHASONE
     Indication: Cataract operation
     Dosage: 5 GTT, QD
     Route: 047
  18. FLAVOXATE HYDROCHLORIDE [Concomitant]
     Active Substance: FLAVOXATE HYDROCHLORIDE
     Indication: Prostatic operation
     Dosage: UNK
     Route: 048
  19. FLAVOXATE HYDROCHLORIDE [Concomitant]
     Active Substance: FLAVOXATE HYDROCHLORIDE
     Route: 048
  20. GINKGO [Concomitant]
     Active Substance: GINKGO
     Indication: Cardiovascular disorder
     Dosage: 1 DF, QD
     Route: 048
     Dates: start: 19980223, end: 19980223
  21. VITAMIN C [Concomitant]
     Active Substance: ASCORBIC ACID
     Indication: Vitamin supplementation
     Dosage: 1 DF, QD
     Route: 048
     Dates: start: 19980223
  22. OMEPRAZOLE [Concomitant]
     Active Substance: OMEPRAZOLE
     Indication: Prophylaxis
     Dosage: UNK
     Route: 048
  23. VITAMINS NOS [Concomitant]
     Active Substance: VITAMINS
     Indication: Vitamin supplementation
     Dosage: 1 DF, QD
     Route: 048
     Dates: end: 19980223

REACTIONS (6)
  - Lip erosion [Recovering/Resolving]
  - Skin lesion [Recovering/Resolving]
  - Ocular hyperaemia [Recovering/Resolving]
  - Toxic epidermal necrolysis [Recovering/Resolving]
  - Pyrexia [Recovering/Resolving]
  - Pruritus [Recovering/Resolving]

NARRATIVE: CASE EVENT DATE: 19980227
